FAERS Safety Report 19569121 (Version 3)
Quarter: 2021Q3

REPORT INFORMATION
  Report Type: Spontaneous
  Country: JP (occurrence: JP)
  Receive Date: 20210714
  Receipt Date: 20210808
  Transmission Date: 20211014
  Serious: Yes (Other)
  Sender: FDA-Public Use
  Company Number: JP-AMGEN-JPNSP2021105302

PATIENT
  Age: 88 Year
  Sex: Female
  Weight: 36.7 kg

DRUGS (13)
  1. EVENITY [Suspect]
     Active Substance: ROMOSOZUMAB-AQQG
  2. EDIROL [Concomitant]
     Active Substance: ELDECALCITOL
     Indication: OSTEOPOROSIS
     Dosage: 0.75 MICROGRAM, QD
     Dates: start: 20150108
  3. LANSOPRAZOLE. [Concomitant]
     Active Substance: LANSOPRAZOLE
     Indication: GASTRIC ULCER
     Dosage: 15 MILLIGRAM, QD
  4. EVENITY [Suspect]
     Active Substance: ROMOSOZUMAB-AQQG
     Indication: OSTEOPOROSIS
     Dosage: 210 MILLIGRAM
     Route: 058
     Dates: start: 20210510, end: 20210614
  5. BERAPROST NA [Concomitant]
     Active Substance: BERAPROST SODIUM
     Indication: CARDIOVASCULAR DISORDER
     Dosage: 40 MICROGRAM, TID
  6. RIONA [Concomitant]
     Active Substance: FERRIC CITRATE ANHYDROUS
     Indication: HYPERPHOSPHATAEMIA
     Dosage: 250 MILLIGRAM, BID
  7. CILOSTAZOL. [Concomitant]
     Active Substance: CILOSTAZOL
     Indication: CARDIOVASCULAR DISORDER
     Dosage: 100 MILLIGRAM, QD
  8. FUROSEMIDE. [Concomitant]
     Active Substance: FUROSEMIDE
     Indication: POLYURIA
     Dosage: 40 MILLIGRAM, QD
  9. JUVELA [TOCOPHERYL ACETATE] [Concomitant]
     Active Substance: .ALPHA.-TOCOPHEROL ACETATE
     Indication: CARDIOVASCULAR DISORDER
     Dosage: 50 MILLIGRAM, TID
  10. MAGMITT [Concomitant]
     Active Substance: MAGNESIUM OXIDE
     Indication: CONSTIPATION
     Dosage: 330 MILLIGRAM, BID
     Dates: start: 20210526
  11. PRALIA [Suspect]
     Active Substance: DENOSUMAB
     Indication: OSTEOPOROSIS
     Dosage: UNK
     Route: 065
  12. LACTULOSE. [Concomitant]
     Active Substance: LACTULOSE
     Indication: CONSTIPATION
     Dosage: 10 MILLILITER, TID
     Dates: start: 20210428
  13. ATORVASTATIN [ATORVASTATIN CALCIUM] [Concomitant]
     Active Substance: ATORVASTATIN CALCIUM
     Indication: HYPERLIPIDAEMIA
     Dosage: 5 MILLIGRAM, QD

REACTIONS (1)
  - Osteonecrosis of jaw [Not Recovered/Not Resolved]

NARRATIVE: CASE EVENT DATE: 20210629
